FAERS Safety Report 11642032 (Version 1)
Quarter: 2015Q4

REPORT INFORMATION
  Report Type: Spontaneous
  Country: US (occurrence: None)
  Receive Date: 20151019
  Receipt Date: 20151019
  Transmission Date: 20160304
  Serious: No
  Sender: FDA-Public Use
  Company Number: US-MDT-ADR-2015-01978

PATIENT
  Age: 67 Year
  Sex: Female

DRUGS (2)
  1. SUFENTANIL 100 MCG/ML [Suspect]
     Active Substance: SUFENTANIL
     Indication: PAIN
     Dosage: 40 MCG/DAY
  2. BACLOFEN INTRATHECAL 90 MCG/ML [Suspect]
     Active Substance: BACLOFEN
     Indication: PAIN
     Dosage: 35.999 MCG/DAY

REACTIONS (2)
  - Drug administration error [None]
  - Device computer issue [None]
